FAERS Safety Report 4893463-9 (Version None)
Quarter: 2006Q1

REPORT INFORMATION
  Report Type: 
  Country: None (occurrence: None)
  Receive Date: 20060127
  Receipt Date: 20060124
  Transmission Date: 20060701
  Serious: Yes (Hospitalization)
  Sender: FDA-Public Use
  Company Number: US-JNJFOC-20060104978

PATIENT
  Age: 66 Year
  Sex: Female
  Weight: 68.27 kg

DRUGS (2)
  1. DURAGESIC-100 [Suspect]
     Route: 062
  2. LIPITOR [Concomitant]

REACTIONS (1)
  - CYSTITIS [None]
